FAERS Safety Report 7892742-0 (Version None)
Quarter: 2011Q4

REPORT INFORMATION
  Report Type: 
  Country: None (occurrence: None)
  Receive Date: 20111104
  Receipt Date: 20111101
  Transmission Date: 20120403
  Serious: Yes (Other)
  Sender: FDA-Public Use
  Company Number: US-BAYER-2011-105826

PATIENT
  Age: 15 Year
  Sex: Female

DRUGS (2)
  1. MAGNEVIST [Suspect]
     Indication: NUCLEAR MAGNETIC RESONANCE IMAGING BRAIN
  2. MAGNEVIST [Suspect]
     Indication: NUCLEAR MAGNETIC RESONANCE IMAGING
     Dosage: 12 ML, ONCE
     Route: 042
     Dates: start: 20111012, end: 20111012

REACTIONS (9)
  - URINE FLOW DECREASED [None]
  - INFLUENZA LIKE ILLNESS [None]
  - CYSTITIS INTERSTITIAL [None]
  - HEADACHE [None]
  - PAIN [None]
  - SINUS HEADACHE [None]
  - MICTURITION URGENCY [None]
  - ANURIA [None]
  - TINNITUS [None]
